FAERS Safety Report 8388184-4 (Version None)
Quarter: 2012Q2

REPORT INFORMATION
  Report Type: 
  Country: None (occurrence: None)
  Receive Date: 20120525
  Receipt Date: 20120522
  Transmission Date: 20120825
  Serious: Yes (Hospitalization, Disabling, Other)
  Sender: FDA-Public Use
  Company Number: US-PFIZER INC-2012124595

PATIENT
  Sex: Female
  Weight: 56.7 kg

DRUGS (5)
  1. EFFEXOR XR [Suspect]
     Indication: GENERALISED ANXIETY DISORDER
     Dosage: 150 MG, DAILY
  2. EFFEXOR XR [Suspect]
     Indication: DEPRESSION
  3. PAXIL [Suspect]
     Indication: GENERALISED ANXIETY DISORDER
     Dosage: 10 TABLET OR 20 TABLET, DAILY
  4. TRAZODONE [Concomitant]
     Indication: SLEEP DISORDER
     Dosage: 150 MG, DAILY
  5. PAXIL [Suspect]
     Indication: DEPRESSION

REACTIONS (15)
  - FACE INJURY [None]
  - EYE INJURY [None]
  - IMPAIRED DRIVING ABILITY [None]
  - TREMOR [None]
  - HEAD INJURY [None]
  - SKELETAL INJURY [None]
  - ROAD TRAFFIC ACCIDENT [None]
  - MULTIPLE FRACTURES [None]
  - FACIAL BONES FRACTURE [None]
  - WEIGHT INCREASED [None]
  - SKULL FRACTURE [None]
  - UPPER LIMB FRACTURE [None]
  - AMNESIA [None]
  - SUBDURAL HAEMATOMA [None]
  - RIB FRACTURE [None]
